FAERS Safety Report 13191864 (Version 2)
Quarter: 2017Q1

REPORT INFORMATION
  Report Type: Spontaneous
  Country: JP (occurrence: JP)
  Receive Date: 20170207
  Receipt Date: 20170307
  Transmission Date: 20170428
  Serious: Yes (Hospitalization)
  Sender: FDA-Public Use
  Company Number: JP-ROCHE-1890162

PATIENT
  Age: 67 Year
  Sex: Male
  Weight: 76 kg

DRUGS (3)
  1. PREDONINE [Concomitant]
     Active Substance: PREDNISOLONE
     Indication: INTERSTITIAL LUNG DISEASE
     Route: 065
     Dates: start: 1994
  2. ACTEMRA [Suspect]
     Active Substance: TOCILIZUMAB
     Indication: RHEUMATOID ARTHRITIS
     Route: 058
     Dates: start: 20160210, end: 20170123
  3. CARERAM [Concomitant]
     Active Substance: IGURATIMOD
     Dosage: DOSAGE IS UNCERTAIN.
     Route: 065
     Dates: start: 20141224

REACTIONS (4)
  - Interstitial lung disease [Not Recovered/Not Resolved]
  - Hepatic cyst [Unknown]
  - Pleural effusion [Unknown]
  - Emphysema [Unknown]

NARRATIVE: CASE EVENT DATE: 20160705
